FAERS Safety Report 5635991-4 (Version None)
Quarter: 2008Q1

REPORT INFORMATION
  Report Type: 
  Country: None (occurrence: None)
  Receive Date: 20080224
  Receipt Date: 20080215
  Transmission Date: 20080703
  Serious: Yes (Other)
  Sender: FDA-Public Use
  Company Number: PHEH2006US04723

PATIENT
  Age: 67 Year
  Sex: Female
  Weight: 88.435 kg

DRUGS (12)
  1. ZOMETA [Suspect]
     Indication: BREAST CANCER
     Dosage: 4MG/100CC NS QMONTH
     Dates: start: 20041116, end: 20050614
  2. AREDIA [Suspect]
     Indication: BREAST CANCER
  3. FEMARA [Concomitant]
     Dosage: 2.5 MG, QD
     Dates: start: 20041116
  4. TRICOR [Concomitant]
     Dosage: 145 MG, UNK
  5. VASOTEC [Concomitant]
     Dosage: UNK, UNK
  6. COREG [Concomitant]
  7. LIPITOR [Concomitant]
     Dates: start: 20050208
  8. PERCOCET [Concomitant]
     Indication: BACK PAIN
  9. PRILOSEC [Concomitant]
  10. DIGOXIN [Concomitant]
  11. GLUCOVANCE [Concomitant]
  12. BISPHOSPHONATES [Concomitant]

REACTIONS (21)
  - DEFORMITY [None]
  - DENTAL DISCOMFORT [None]
  - DENTAL OPERATION [None]
  - DENTAL PROSTHESIS PLACEMENT [None]
  - DENTAL TREATMENT [None]
  - EMOTIONAL DISTRESS [None]
  - FISTULA [None]
  - GINGIVAL DISORDER [None]
  - GINGIVAL OPERATION [None]
  - IMPAIRED HEALING [None]
  - LIFE EXPECTANCY SHORTENED [None]
  - LOOSE TOOTH [None]
  - ORAL DISCOMFORT [None]
  - ORAL INFECTION [None]
  - OSTEOMYELITIS [None]
  - OSTEONECROSIS [None]
  - PAIN [None]
  - PERIODONTAL DISEASE [None]
  - TENDERNESS [None]
  - TOOTH EXTRACTION [None]
  - TOOTH LOSS [None]
